FAERS Safety Report 6250496-8 (Version None)
Quarter: 2009Q2

REPORT INFORMATION
  Report Type: 
  Country: None (occurrence: None)
  Receive Date: 20090630
  Receipt Date: 20090618
  Transmission Date: 20091009
  Serious: Yes (Other)
  Sender: FDA-Public Use
  Company Number: US-ROCHE-540988

PATIENT
  Sex: Female

DRUGS (10)
  1. PEG-INTERFERON A-2A (RO 25-8310) [Suspect]
     Indication: HEPATITIS C
     Dosage: FORM: PRE-FILLED SYRINGE
     Route: 065
     Dates: start: 20071113
  2. RIBAVIRIN [Suspect]
     Indication: HEPATITIS C
     Dosage: HALF THE DOSE
     Route: 065
  3. RIBAVIRIN [Suspect]
     Route: 065
  4. RIBAVIRIN [Suspect]
     Route: 065
  5. RIBAVIRIN (NON-ROCHE) [Suspect]
     Route: 065
  6. RIBAVIRIN (NON-ROCHE) [Suspect]
     Route: 065
  7. LEXAPRO [Concomitant]
  8. MORPHINE [Concomitant]
     Indication: BACK PAIN
     Dosage: PAIN MEDICATION
  9. HYDROCODONE BITARTRATE [Concomitant]
  10. THYROID TAB [Concomitant]
     Indication: HYPERTHYROIDISM
     Dosage: THYROID GLAND

REACTIONS (6)
  - ANAEMIA [None]
  - DEPRESSION [None]
  - MEMORY IMPAIRMENT [None]
  - RENAL FAILURE CHRONIC [None]
  - TERMINAL STATE [None]
  - UNDERDOSE [None]
